FAERS Safety Report 25185070 (Version 2)
Quarter: 2025Q4

REPORT INFORMATION
  Report Type: Report from Study
  Country: US (occurrence: US)
  Receive Date: 20250410
  Receipt Date: 20251126
  Transmission Date: 20260118
  Serious: Yes (Hospitalization, Other)
  Sender: TAKEDA
  Company Number: US-TAKEDA-2022TUS059141

PATIENT
  Age: 14 Year
  Sex: Female
  Weight: 31.89 kg

DRUGS (8)
  1. BRIGATINIB [Suspect]
     Active Substance: BRIGATINIB
     Indication: Neurofibromatosis
     Dosage: 30 MILLIGRAM, QD
     Dates: start: 20220715
  2. BRIGATINIB [Suspect]
     Active Substance: BRIGATINIB
     Indication: Benign neoplasm
     Dosage: 90 MILLIGRAM, QD
  3. BRIGATINIB [Suspect]
     Active Substance: BRIGATINIB
     Dosage: 120 MILLIGRAM, QD
  4. BRIGATINIB [Suspect]
     Active Substance: BRIGATINIB
     Dosage: 120 MILLIGRAM, QD
  5. BRIGATINIB [Suspect]
     Active Substance: BRIGATINIB
     Dosage: 120 MILLIGRAM, QD
  6. BRIGATINIB [Suspect]
     Active Substance: BRIGATINIB
     Dosage: 150 MILLIGRAM, QD
  7. AVASTIN [Concomitant]
     Active Substance: BEVACIZUMAB
     Dosage: UNK
  8. BACLOFEN [Concomitant]
     Active Substance: BACLOFEN
     Indication: Muscle relaxant therapy
     Dosage: 5 MILLIGRAM, BID

REACTIONS (11)
  - Cardiac arrest [Unknown]
  - Pneumonia [Unknown]
  - Seizure [Unknown]
  - Blood pressure abnormal [Unknown]
  - Neoplasm [Unknown]
  - Bladder disorder [Recovering/Resolving]
  - Urinary incontinence [Recovering/Resolving]
  - Wheelchair user [Unknown]
  - Product dose omission issue [Unknown]
  - Product administration error [Unknown]
  - Off label use [Unknown]
